FAERS Safety Report 11677261 (Version 1)
Quarter: 2015Q4

REPORT INFORMATION
  Report Type: Spontaneous
  Country: FR (occurrence: FR)
  Receive Date: 20151028
  Receipt Date: 20151028
  Transmission Date: 20160304
  Serious: Yes (Hospitalization)
  Sender: FDA-Public Use
  Company Number: DE-ASTRAZENECA-2015SF03820

PATIENT
  Age: 80 Year
  Sex: Female

DRUGS (14)
  1. BRICANYL [Interacting]
     Active Substance: TERBUTALINE SULFATE
     Dosage: 2 PUFF DAILY IH
     Route: 055
  2. FORLAX [Interacting]
     Active Substance: POLYETHYLENE GLYCOL 4000
     Dosage: UNK
     Route: 065
  3. ATROVENT [Interacting]
     Active Substance: IPRATROPIUM BROMIDE
     Dosage: 1PUFF DAILY IH
     Route: 045
  4. ZESTRIL [Suspect]
     Active Substance: LISINOPRIL
     Route: 048
  5. DIGOXINE [Interacting]
     Active Substance: DIGOXIN
     Route: 048
  6. ISOPTIN [Interacting]
     Active Substance: VERAPAMIL HYDROCHLORIDE
     Route: 048
  7. LYSINE ASPIRIN [Interacting]
     Active Substance: ASPIRIN DL-LYSINE
     Route: 048
  8. BACLOFEN. [Interacting]
     Active Substance: BACLOFEN
     Route: 048
  9. LEVOTHYROX [Interacting]
     Active Substance: LEVOTHYROXINE
     Dosage: 75 UG/L, QD
     Route: 048
  10. RILUTEK [Interacting]
     Active Substance: RILUZOLE
     Route: 048
  11. PREDNISOLONE. [Interacting]
     Active Substance: PREDNISOLONE
     Dosage: UNK
     Route: 065
  12. LASIX [Interacting]
     Active Substance: FUROSEMIDE
     Route: 048
  13. OMEPRAZOLE. [Interacting]
     Active Substance: OMEPRAZOLE
     Route: 048
  14. PAROXETINE HYDROCHLORIDE. [Interacting]
     Active Substance: PAROXETINE HYDROCHLORIDE
     Route: 048

REACTIONS (14)
  - Tongue dry [Unknown]
  - Renal impairment [Unknown]
  - C-reactive protein increased [Unknown]
  - Abnormal faeces [Unknown]
  - Electrocardiogram ST segment abnormal [Unknown]
  - Depression [Unknown]
  - Vomiting [Unknown]
  - Decreased appetite [Unknown]
  - Oxygen saturation decreased [Unknown]
  - Cardioactive drug level increased [Unknown]
  - Drug interaction [Unknown]
  - Nausea [Unknown]
  - Abdominal distension [Unknown]
  - Speech disorder [Unknown]
